FAERS Safety Report 18591131 (Version 2)
Quarter: 2020Q4

REPORT INFORMATION
  Report Type: Spontaneous
  Country: US (occurrence: US)
  Receive Date: 20201208
  Receipt Date: 20201222
  Transmission Date: 20210114
  Serious: Yes (Hospitalization, Other)
  Sender: FDA-Public Use
  Company Number: US-009507513-2012USA000178

PATIENT
  Sex: Male

DRUGS (8)
  1. SALMON OIL [Concomitant]
     Active Substance: FISH OIL
     Indication: BLOOD CHOLESTEROL
     Dosage: UNK
     Dates: start: 20030722, end: 202006
  2. JANUMET [Suspect]
     Active Substance: METFORMIN HYDROCHLORIDE\SITAGLIPTIN PHOSPHATE
     Dosage: UNK
     Route: 048
     Dates: start: 20171108, end: 20200220
  3. JANUVIA [Suspect]
     Active Substance: SITAGLIPTIN PHOSPHATE
     Dosage: UNK
     Dates: end: 201711
  4. MOTRIN [Concomitant]
     Active Substance: IBUPROFEN
     Indication: ARTHRALGIA
     Dosage: UNK
     Dates: start: 20040615, end: 202006
  5. JANUMET XR [Suspect]
     Active Substance: METFORMIN HYDROCHLORIDE\SITAGLIPTIN PHOSPHATE
     Dosage: 50/1000 MILLIGRAM, TWICE DAILY
     Route: 048
     Dates: start: 20171108, end: 20200220
  6. TYLENOL [Concomitant]
     Active Substance: ACETAMINOPHEN
     Indication: ARTHRALGIA
     Dosage: UNK
     Dates: start: 20140109, end: 202006
  7. ASPIRIN. [Concomitant]
     Active Substance: ASPIRIN
     Indication: ARTHRALGIA
     Dosage: UNK
     Dates: start: 20050717, end: 202006
  8. INSULIN [Concomitant]
     Active Substance: INSULIN NOS

REACTIONS (22)
  - Vision blurred [Unknown]
  - Inappropriate schedule of product administration [Unknown]
  - Biliary dilatation [Unknown]
  - Glycosylated haemoglobin abnormal [Unknown]
  - Hepatosplenomegaly [Unknown]
  - Weight fluctuation [Unknown]
  - Paraesthesia [Unknown]
  - Pancreatic carcinoma stage III [Unknown]
  - Anion gap increased [Unknown]
  - Gallbladder disorder [Unknown]
  - Anxiety [Unknown]
  - Aspartate aminotransferase increased [Unknown]
  - Fatigue [Unknown]
  - Computerised tomogram abdomen [Unknown]
  - Ascites [Unknown]
  - Pleural effusion [Unknown]
  - Blood glucose increased [Unknown]
  - Diabetes mellitus inadequate control [Unknown]
  - Emotional distress [Unknown]
  - Dry skin [Unknown]
  - Alanine aminotransferase increased [Unknown]
  - Hypoglycaemia [Unknown]

NARRATIVE: CASE EVENT DATE: 20130621
